FAERS Safety Report 19900547 (Version 1)
Quarter: 2021Q3

REPORT INFORMATION
  Report Type: Spontaneous
  Country: CN (occurrence: CN)
  Receive Date: 20210929
  Receipt Date: 20210929
  Transmission Date: 20211014
  Serious: Yes (Other)
  Sender: FDA-Public Use
  Company Number: CN-PFIZER INC-202101226059

PATIENT
  Age: 40 Year
  Sex: Male

DRUGS (6)
  1. ETHAMBUTOL HYDROCHLORIDE. [Concomitant]
     Active Substance: ETHAMBUTOL HYDROCHLORIDE
     Indication: MYCOBACTERIAL INFECTION
     Dosage: 0.75 G, 1X/DAY
     Route: 048
     Dates: start: 20210715, end: 20210913
  2. AMIKACIN SULFATE. [Concomitant]
     Active Substance: AMIKACIN SULFATE
     Indication: MYCOBACTERIAL INFECTION
     Dosage: 400 MG, 1X/DAY
     Route: 041
     Dates: start: 20210809, end: 20210916
  3. ZYVOX [Concomitant]
     Active Substance: LINEZOLID
     Indication: MYCOBACTERIAL INFECTION
     Dosage: 0.6 G, 1X/DAY
     Route: 048
     Dates: start: 20210721, end: 20210913
  4. ZITHROMAX [Suspect]
     Active Substance: AZITHROMYCIN DIHYDRATE
     Indication: MYCOBACTERIAL INFECTION
     Dosage: 0.5 G, 1X/DAY
     Route: 048
     Dates: start: 20210902, end: 20210907
  5. RIFABUTIN. [Concomitant]
     Active Substance: RIFABUTIN
     Indication: MYCOBACTERIAL INFECTION
     Dosage: 0.3 G, 1X/DAY
     Route: 048
     Dates: start: 20210716, end: 20210913
  6. TIENAM [Concomitant]
     Active Substance: CILASTATIN SODIUM\IMIPENEM
     Indication: MYCOBACTERIAL INFECTION
     Dosage: 1 G, 3X/DAY
     Route: 041
     Dates: start: 20210802, end: 20210916

REACTIONS (4)
  - Decreased appetite [Recovering/Resolving]
  - Off label use [Unknown]
  - Nausea [Recovering/Resolving]
  - Vomiting [Recovering/Resolving]

NARRATIVE: CASE EVENT DATE: 20210902
